FAERS Safety Report 21032462 (Version 1)
Quarter: 2022Q3

REPORT INFORMATION
  Report Type: Spontaneous
  Country: US (occurrence: US)
  Receive Date: 20220701
  Receipt Date: 20220701
  Transmission Date: 20221026
  Serious: No
  Sender: FDA-Public Use
  Company Number: US-BRISTOL-MYERS SQUIBB COMPANY-2022-066536

PATIENT
  Age: 66 Year
  Sex: Female

DRUGS (1)
  1. REVLIMID [Suspect]
     Active Substance: LENALIDOMIDE
     Indication: Plasma cell myeloma
     Dosage: FREQUENCY : TAKE 1CAPSULE BY MOUTH  WHOLE AT THE SAME TIME DAILY,  W/ OR W/O FOOD , FOR 14 DAYS ON T
     Route: 048
     Dates: start: 20220615

REACTIONS (3)
  - Pruritus [Unknown]
  - Constipation [Unknown]
  - Product temperature excursion issue [Unknown]
